FAERS Safety Report 11614981 (Version 1)
Quarter: 2015Q4

REPORT INFORMATION
  Report Type: Spontaneous
  Country: US (occurrence: None)
  Receive Date: 20151007
  Receipt Date: 20151007
  Transmission Date: 20160304
  Serious: Yes (Hospitalization)
  Sender: FDA-Public Use
  Company Number: 173747-2015-999359

PATIENT
  Age: 63 Year
  Sex: Male
  Weight: 145 kg

DRUGS (18)
  1. OPTIFLUX DIALYZER [Concomitant]
     Active Substance: DEVICE
  2. COMBISET 8MM PRE-2 VENOUS INJECT SITES [Concomitant]
  3. ATORVASTATIN [Concomitant]
     Active Substance: ATORVASTATIN
  4. HYDROCHLOROQUINE [Concomitant]
     Active Substance: HYDROXYCHLOROQUINE SULFATE
  5. CALCITRIOL. [Concomitant]
     Active Substance: CALCITRIOL
  6. GRANUFLO [Concomitant]
     Active Substance: ACETIC ACID\SODIUM ACETATE
  7. SERTRALINE [Concomitant]
     Active Substance: SERTRALINE HYDROCHLORIDE
  8. K2 [Concomitant]
     Active Substance: JWH-018
  9. NATURALYTE DRY PACK RX-12 [Concomitant]
  10. LEVEMIR [Concomitant]
     Active Substance: INSULIN DETEMIR
  11. SALINE, 0.9%, 1 LITER [Suspect]
     Active Substance: SODIUM CHLORIDE
     Indication: CHRONIC KIDNEY DISEASE
     Dates: end: 20150828
  12. OXYCODONE/ACETAMINOPHEN [Concomitant]
     Active Substance: ACETAMINOPHEN\OXYCODONE HYDROCHLORIDE
  13. DILTIAZEM [Concomitant]
     Active Substance: DILTIAZEM
  14. ALLOPURINOL. [Concomitant]
     Active Substance: ALLOPURINOL
  15. TRAZODONE [Concomitant]
     Active Substance: TRAZODONE HYDROCHLORIDE
  16. AMIODARONE [Concomitant]
     Active Substance: AMIODARONE
  17. TAMSULOSIN [Concomitant]
     Active Substance: TAMSULOSIN
  18. GABAPENTIN. [Concomitant]
     Active Substance: GABAPENTIN

REACTIONS (5)
  - Oedema peripheral [None]
  - Hypotension [None]
  - Sudden cardiac death [None]
  - Unresponsive to stimuli [None]
  - Cardio-respiratory arrest [None]

NARRATIVE: CASE EVENT DATE: 20150807
